FAERS Safety Report 14176116 (Version 4)
Quarter: 2018Q1

REPORT INFORMATION
  Report Type: Report from Study
  Country: None (occurrence: US)
  Receive Date: 20171109
  Receipt Date: 20180321
  Transmission Date: 20180508
  Serious: Yes (Death, Life-Threatening, Hospitalization)
  Sender: FDA-Public Use
  Company Number: US-ABBVIE-17P-163-2157288-00

PATIENT
  Age: 31 Year
  Sex: Male
  Weight: 57.2 kg

DRUGS (2)
  1. HUMIRA [Suspect]
     Active Substance: ADALIMUMAB
     Route: 058
     Dates: start: 20130101, end: 20170810
  2. HUMIRA [Suspect]
     Active Substance: ADALIMUMAB
     Indication: PSORIASIS
     Route: 058
     Dates: start: 20111215, end: 20121115

REACTIONS (3)
  - Abdominal distension [Fatal]
  - Chronic obstructive pulmonary disease [Fatal]
  - Abdominal pain [Fatal]

NARRATIVE: CASE EVENT DATE: 20171106
